FAERS Safety Report 4783337-6 (Version None)
Quarter: 2005Q3

REPORT INFORMATION
  Report Type: 
  Country: None (occurrence: None)
  Receive Date: 20050929
  Receipt Date: 20050909
  Transmission Date: 20060218
  Serious: Yes (Death, Life-Threatening)
  Sender: FDA-Public Use
  Company Number: IT-ROCHE-417171

PATIENT
  Age: 47 Year
  Sex: Female

DRUGS (3)
  1. ROCEPHIN [Suspect]
     Indication: OTITIS MEDIA
     Route: 030
     Dates: start: 20050906, end: 20050906
  2. EN [Concomitant]
     Route: 048
  3. DANTRIUM [Concomitant]
     Route: 048

REACTIONS (3)
  - APATHY [None]
  - CARDIAC ARREST [None]
  - RESPIRATORY FAILURE [None]
